FAERS Safety Report 7260320-2 (Version None)
Quarter: 2011Q1

REPORT INFORMATION
  Report Type: 
  Country: None (occurrence: None)
  Receive Date: 20110130
  Receipt Date: 20101015
  Transmission Date: 20110831
  Serious: No
  Sender: FDA-Public Use
  Company Number: US-ABBOTT-10P-163-0679525-00

PATIENT
  Sex: Female
  Weight: 78.996 kg

DRUGS (2)
  1. PRILOSEC [Concomitant]
     Indication: GASTROOESOPHAGEAL REFLUX DISEASE
  2. HUMIRA [Suspect]
     Indication: ARTHRITIS
     Dates: start: 20100601

REACTIONS (2)
  - INJECTION SITE VESICLES [None]
  - DEVICE MALFUNCTION [None]
